FAERS Safety Report 5043280-4 (Version None)
Quarter: 2006Q3

REPORT INFORMATION
  Report Type: 
  Country: None (occurrence: None)
  Receive Date: 20060703
  Receipt Date: 20060703
  Transmission Date: 20061208
  Serious: No
  Sender: FDA-Public Use
  Company Number: None

PATIENT
  Sex: Male
  Weight: 98.0677 kg

DRUGS (4)
  1. PAROXETINE HCL [Suspect]
     Indication: BIPOLAR I DISORDER
     Dosage: 40MG  Q DAY PO
     Route: 048
     Dates: start: 20060207, end: 20060309
  2. DIAZEPAM [Concomitant]
  3. PRAZOSIN HCL [Concomitant]
  4. QUETIAPINE FUMARATE [Concomitant]

REACTIONS (5)
  - ANXIETY [None]
  - DRUG EFFECT DECREASED [None]
  - FEELING ABNORMAL [None]
  - PARANOIA [None]
  - PHARMACEUTICAL PRODUCT COMPLAINT [None]
